FAERS Safety Report 10404318 (Version 1)
Quarter: 2014Q1

REPORT INFORMATION
  Report Type: Spontaneous
  Country: US (occurrence: None)
  Receive Date: 20131226
  Receipt Date: 20131226
  Transmission Date: 20141002
  Serious: Yes (Other)
  Sender: FDA-Public Use
  Company Number: PHHY2011US49394

PATIENT
  Sex: Male

DRUGS (1)
  1. AFINITOR (RAD) UNKNOWN [Suspect]
     Indication: RENAL CELL CARCINOMA
     Route: 048

REACTIONS (4)
  - Neoplasm [None]
  - Stomatitis [None]
  - Drug ineffective [None]
  - Neoplasm malignant [None]
